FAERS Safety Report 24367722 (Version 6)
Quarter: 2025Q1

REPORT INFORMATION
  Report Type: Report from Study
  Country: CA (occurrence: CA)
  Receive Date: 20240926
  Receipt Date: 20250131
  Transmission Date: 20250408
  Serious: Yes (Hospitalization, Other)
  Sender: SANDOZ
  Company Number: CA-002147023-NVSC2022CA071471

PATIENT
  Age: 79 Year
  Sex: Female

DRUGS (11)
  1. HYRIMOZ [Suspect]
     Active Substance: ADALIMUMAB-ADAZ
     Route: 058
     Dates: start: 20230502
  2. HYRIMOZ [Suspect]
     Active Substance: ADALIMUMAB-ADAZ
     Route: 058
  3. HYRIMOZ [Suspect]
     Active Substance: ADALIMUMAB-ADAZ
     Indication: Psoriatic arthropathy
     Dosage: 40 MG,  Q2SEMAINES, Q2W, (PRE-FILLED PEN)
     Route: 058
     Dates: start: 20220311
  4. HYRIMOZ [Suspect]
     Active Substance: ADALIMUMAB-ADAZ
     Dosage: 40 MG, Q2W (PRE-FILLED SYRINGE)
     Route: 058
     Dates: start: 20240604
  5. HYRIMOZ [Suspect]
     Active Substance: ADALIMUMAB-ADAZ
     Route: 058
     Dates: start: 20230310
  6. HYRIMOZ [Suspect]
     Active Substance: ADALIMUMAB-ADAZ
     Route: 058
     Dates: start: 20230612
  7. HYRIMOZ [Suspect]
     Active Substance: ADALIMUMAB-ADAZ
     Route: 058
     Dates: start: 20220830
  8. HYRIMOZ [Suspect]
     Active Substance: ADALIMUMAB-ADAZ
     Route: 058
     Dates: start: 20240520
  9. COLCHICINE [Concomitant]
     Active Substance: COLCHICINE
     Indication: Product used for unknown indication
     Route: 065
  10. OZEMPIC [Concomitant]
     Active Substance: SEMAGLUTIDE
     Indication: Diabetes mellitus
     Route: 065
  11. SEMAGLUTIDE [Concomitant]
     Active Substance: SEMAGLUTIDE
     Indication: Diabetes mellitus
     Route: 058

REACTIONS (29)
  - Crystal arthropathy [Unknown]
  - Carpal tunnel syndrome [Unknown]
  - Osteoarthritis [Unknown]
  - Cystocele [Unknown]
  - Pain in extremity [Unknown]
  - Foot deformity [Unknown]
  - Arthralgia [Unknown]
  - COVID-19 [Recovering/Resolving]
  - Breast disorder [Unknown]
  - Fatigue [Unknown]
  - Dysuria [Unknown]
  - Oedema peripheral [Unknown]
  - Dysuria [Recovered/Resolved]
  - Insomnia [Unknown]
  - Urinary tract infection bacterial [Recovered/Resolved]
  - Kidney infection [Unknown]
  - Arthritis infective [Unknown]
  - Localised infection [Unknown]
  - Rhinitis [Unknown]
  - Vaginal infection [Unknown]
  - Product dose omission issue [Unknown]
  - Device difficult to use [Unknown]
  - Needle issue [Unknown]
  - Deafness [Unknown]
  - Urinary tract infection [Not Recovered/Not Resolved]
  - Bladder pain [Not Recovered/Not Resolved]
  - Myalgia [Unknown]
  - Vulvovaginal pruritus [Unknown]
  - Inappropriate schedule of product administration [Unknown]

NARRATIVE: CASE EVENT DATE: 20220813
